FAERS Safety Report 6029926-2 (Version None)
Quarter: 2009Q1

REPORT INFORMATION
  Report Type: 
  Country: None (occurrence: None)
  Receive Date: 20090105
  Receipt Date: 20090105
  Transmission Date: 20090719
  Serious: Yes (Other)
  Sender: FDA-Public Use
  Company Number: None

PATIENT
  Age: 53 Year
  Sex: Female
  Weight: 47.6277 kg

DRUGS (2)
  1. LEVAQUIN [Suspect]
     Indication: CYSTITIS
     Dosage: TAKE 1 750MG 1 DAILY PO
     Route: 048
     Dates: start: 20080711, end: 20080721
  2. LEVAQUIN [Suspect]
     Indication: RENAL DISORDER
     Dosage: TAKE 1 750MG 1 DAILY PO
     Route: 048
     Dates: start: 20080711, end: 20080721

REACTIONS (9)
  - BURNING SENSATION [None]
  - DRY MOUTH [None]
  - ERYTHEMA [None]
  - FEELING HOT [None]
  - GINGIVAL DISORDER [None]
  - JOINT SWELLING [None]
  - ORAL DISCOMFORT [None]
  - SUNBURN [None]
  - TREATMENT NONCOMPLIANCE [None]
